FAERS Safety Report 20182954 (Version 1)
Quarter: 2021Q4

REPORT INFORMATION
  Report Type: Report from Study
  Country: US (occurrence: US)
  Receive Date: 20211214
  Receipt Date: 20211214
  Transmission Date: 20220303
  Serious: Yes (Other)
  Sender: FDA-Public Use
  Company Number: US-KOREA IPSEN Pharma-2021-31308

PATIENT
  Age: 44 Year
  Sex: Female

DRUGS (2)
  1. SOMATULINE DEPOT [Suspect]
     Active Substance: LANREOTIDE ACETATE
     Indication: Carcinoid syndrome
     Dosage: 120 MG EVERY FOUR WEEKS
     Route: 058
     Dates: start: 202101
  2. EVEROLIMUS [Suspect]
     Active Substance: EVEROLIMUS
     Indication: Product used for unknown indication

REACTIONS (9)
  - Stenosis [Recovering/Resolving]
  - Heart valve incompetence [Recovering/Resolving]
  - Hepatic cancer metastatic [Recovering/Resolving]
  - Type 2 diabetes mellitus [Recovering/Resolving]
  - Injection site mass [Recovering/Resolving]
  - Injection site haemorrhage [Recovering/Resolving]
  - Diarrhoea [Recovering/Resolving]
  - Flushing [Recovering/Resolving]
  - Inappropriate schedule of product administration [Unknown]

NARRATIVE: CASE EVENT DATE: 20210101
